FAERS Safety Report 18122174 (Version 1)
Quarter: 2020Q3

REPORT INFORMATION
  Report Type: Spontaneous
  Country: US (occurrence: US)
  Receive Date: 20200807
  Receipt Date: 20200807
  Transmission Date: 20201103
  Serious: No
  Sender: FDA-Public Use
  Company Number: US-ELI_LILLY_AND_COMPANY-US202007004201

PATIENT
  Sex: Female

DRUGS (3)
  1. ADORAL [Suspect]
     Active Substance: CLONIXIN LYSINE
     Indication: DEPRESSION
     Dosage: UNK UNK, UNKNOWN
     Route: 065
  2. TALTZ [Suspect]
     Active Substance: IXEKIZUMAB
     Indication: PRODUCT USED FOR UNKNOWN INDICATION
     Dosage: 80 MG, UNKNOWN
     Route: 065
     Dates: start: 201911
  3. FLUOXETINE [Concomitant]
     Active Substance: FLUOXETINE HYDROCHLORIDE
     Indication: DEPRESSION

REACTIONS (4)
  - Pollakiuria [Unknown]
  - Injection site mass [Unknown]
  - Illness [Unknown]
  - Psoriasis [Unknown]
